FAERS Safety Report 7531771-3 (Version None)
Quarter: 2011Q2

REPORT INFORMATION
  Report Type: 
  Country: None (occurrence: None)
  Receive Date: 20110608
  Receipt Date: 20110607
  Transmission Date: 20111010
  Serious: Yes (Death)
  Sender: FDA-Public Use
  Company Number: JP-SANOFI-AVENTIS-2011SA035343

PATIENT
  Sex: Male

DRUGS (3)
  1. CISPLATIN [Concomitant]
     Indication: OESOPHAGEAL CARCINOMA
     Dates: start: 20110525, end: 20110525
  2. FLUOROURACIL [Concomitant]
     Indication: OESOPHAGEAL CARCINOMA
     Dates: start: 20110525, end: 20110525
  3. TAXOTERE [Suspect]
     Indication: OESOPHAGEAL CARCINOMA
     Route: 051
     Dates: start: 20110525, end: 20110525

REACTIONS (3)
  - ENTERITIS INFECTIOUS [None]
  - BONE MARROW FAILURE [None]
  - DIARRHOEA [None]
